FAERS Safety Report 11379889 (Version 1)
Quarter: 2015Q3

REPORT INFORMATION
  Report Type: Spontaneous
  Country: DE (occurrence: DE)
  Receive Date: 20150814
  Receipt Date: 20150814
  Transmission Date: 20151125
  Serious: Yes (Other)
  Sender: FDA-Public Use
  Company Number: DE-AMGEN-DEUSP2015081076

PATIENT
  Age: 67 Year
  Sex: Male
  Weight: 75 kg

DRUGS (17)
  1. APREPITANT. [Concomitant]
     Active Substance: APREPITANT
     Dosage: 80 MG, UNK
     Route: 048
  2. PREDNISOLUT                        /00016203/ [Concomitant]
     Dosage: 100 MG, UNK
     Route: 040
  3. FOLIC ACID. [Concomitant]
     Active Substance: FOLIC ACID
     Indication: COLON CANCER METASTATIC
     Dosage: UNK
     Route: 042
  4. 5-FU                               /00098801/ [Concomitant]
     Active Substance: FLUOROURACIL
     Indication: COLON CANCER METASTATIC
     Dosage: UNK
     Route: 042
  5. VECTIBIX [Suspect]
     Active Substance: PANITUMUMAB
     Indication: COLON CANCER
     Dosage: 360 MG, UNK
     Route: 042
     Dates: start: 20150415
  6. GRANISETRON [Concomitant]
     Active Substance: GRANISETRON
     Dosage: 1 MG, UNK
     Route: 040
  7. GLUCOSE [Concomitant]
     Active Substance: DEXTROSE
     Dosage: 5 %, SOLUTION, IV WITH OXALIPLATIN
     Route: 042
  8. VECTIBIX [Suspect]
     Active Substance: PANITUMUMAB
     Dosage: 6 MG/KG, BODY WEIGHT
     Route: 042
  9. ELOXATIN [Concomitant]
     Active Substance: OXALIPLATIN
     Indication: COLON CANCER
     Dosage: 137.5 MG, UNK
     Route: 042
     Dates: start: 20150415
  10. FENISTIL [Concomitant]
     Active Substance: DIMETHINDENE
     Dosage: 4 UNK, UNK
     Route: 040
  11. APREPITANT. [Concomitant]
     Active Substance: APREPITANT
     Dosage: 125 MG, UNK
     Route: 048
  12. DEXAMETHASONE. [Concomitant]
     Active Substance: DEXAMETHASONE
     Dosage: 4 MG, UNK
  13. FENISTIL [Concomitant]
     Active Substance: DIMETHINDENE
     Indication: PREMEDICATION
     Dosage: 4 MG, UNK
     Route: 042
     Dates: start: 20150415
  14. RANITIC [Concomitant]
     Active Substance: RANITIDINE HYDROCHLORIDE
     Dosage: 50 MG, UNK
     Route: 040
  15. OXALIPLATIN. [Concomitant]
     Active Substance: OXALIPLATIN
     Indication: COLON CANCER METASTATIC
     Dosage: UNK
     Route: 042
  16. DEXA                               /00008501/ [Concomitant]
     Indication: PREMEDICATION
     Dosage: 4 MG, UNK
     Route: 042
     Dates: start: 20150415
  17. DOXYCYCLIN                         /00055701/ [Concomitant]
     Dosage: 100 MG, UNK
     Route: 048

REACTIONS (6)
  - Circulatory collapse [Unknown]
  - Polyneuropathy [Unknown]
  - Chills [Unknown]
  - Flushing [Unknown]
  - Nausea [Unknown]
  - Gait disturbance [Unknown]

NARRATIVE: CASE EVENT DATE: 20150415
